FAERS Safety Report 15942488 (Version 3)
Quarter: 2019Q1

REPORT INFORMATION
  Report Type: Spontaneous
  Country: GB (occurrence: GB)
  Receive Date: 20190209
  Receipt Date: 20190218
  Transmission Date: 20190417
  Serious: Yes (Hospitalization)
  Sender: FDA-Public Use
  Company Number: GB-TEVA-2019-GB-1008699

PATIENT
  Age: 71 Year
  Sex: Female
  Weight: 50.1 kg

DRUGS (5)
  1. CISPLATIN. [Suspect]
     Active Substance: CISPLATIN
     Dates: start: 20181203, end: 20181203
  2. ETOPOSIDE. [Suspect]
     Active Substance: ETOPOSIDE
     Dates: start: 20181203, end: 20181203
  3. SIMVASTATIN. [Concomitant]
     Active Substance: SIMVASTATIN
  4. ETOPOSIDE. [Suspect]
     Active Substance: ETOPOSIDE
     Indication: SMALL CELL LUNG CANCER
     Dosage: 300 MILLIGRAM DAILY;
     Route: 048
     Dates: start: 20181228, end: 20181229
  5. CISPLATIN. [Suspect]
     Active Substance: CISPLATIN
     Indication: SMALL CELL LUNG CANCER
     Dosage: 79 MILLIGRAM DAILY;
     Dates: start: 20181227, end: 20181227

REACTIONS (1)
  - Neutropenic sepsis [Recovering/Resolving]

NARRATIVE: CASE EVENT DATE: 20190106
